FAERS Safety Report 21846775 (Version 2)
Quarter: 2023Q1

REPORT INFORMATION
  Report Type: Other
  Country: DE (occurrence: None)
  Receive Date: 20230111
  Receipt Date: 20230119
  Transmission Date: 20230418
  Serious: No
  Sender: FDA-Public Use
  Company Number: DE-ROCHE-3259460

PATIENT
  Sex: Female

DRUGS (3)
  1. OCRELIZUMAB [Suspect]
     Active Substance: OCRELIZUMAB
     Indication: Relapsing multiple sclerosis
     Route: 042
     Dates: start: 20190314, end: 20190328
  2. OCRELIZUMAB [Suspect]
     Active Substance: OCRELIZUMAB
     Dosage: MOST RECENT DOSE : 600 MG.?MOST RECENT DOSE PRIOR TO EVENT : 11/MAY/2022.
     Route: 042
     Dates: start: 20191002
  3. OPIPRAMOL [Concomitant]
     Active Substance: OPIPRAMOL
     Indication: Stress
     Route: 048
     Dates: start: 20210504

REACTIONS (1)
  - Coronavirus infection [Recovered/Resolved]
